FAERS Safety Report 6084541-X (Version None)
Quarter: 2009Q1

REPORT INFORMATION
  Report Type: 
  Country: None (occurrence: None)
  Receive Date: 20090219
  Receipt Date: 20090205
  Transmission Date: 20090719
  Serious: Yes (Death, Other)
  Sender: FDA-Public Use
  Company Number: CZ-PFIZER INC-2009166317

PATIENT

DRUGS (4)
  1. NIFEDIPINE [Suspect]
     Route: 064
  2. METHYLDOPA [Suspect]
     Route: 064
  3. HYDROCHLOROTHIAZIDE [Suspect]
     Route: 064
  4. METOPROLOL TARTRATE [Suspect]
     Route: 063

REACTIONS (2)
  - DRUG EXPOSURE DURING PREGNANCY [None]
  - PREMATURE BABY [None]
